FAERS Safety Report 9778523 (Version 2)
Quarter: 2014Q1

REPORT INFORMATION
  Report Type: Spontaneous
  Country: US (occurrence: US)
  Receive Date: 20131223
  Receipt Date: 20140124
  Transmission Date: 20141002
  Serious: No
  Sender: FDA-Public Use
  Company Number: US-009507513-1312USA009924

PATIENT
  Sex: Female

DRUGS (3)
  1. IMPLANON [Suspect]
     Dosage: SECOND IMPLANT
     Route: 059
  2. IMPLANON [Suspect]
     Dosage: FIRST IMPLANT
     Route: 059
  3. NEXPLANON [Concomitant]
     Dosage: UNK
     Route: 059

REACTIONS (3)
  - Medical device complication [Unknown]
  - No adverse event [Unknown]
  - Overdose [Unknown]
